FAERS Safety Report 10227104 (Version 2)
Quarter: 2014Q3

REPORT INFORMATION
  Report Type: Spontaneous
  Country: US (occurrence: None)
  Receive Date: 20140606
  Receipt Date: 20140707
  Transmission Date: 20150326
  Serious: Yes (Hospitalization)
  Sender: FDA-Public Use
  Company Number: UNT-2014-001289

PATIENT
  Age: 66 Year
  Sex: Female
  Weight: 49.9 kg

DRUGS (2)
  1. REMODULIN [Suspect]
     Active Substance: TREPROSTINIL
     Indication: COR PULMONALE CHRONIC
     Dosage: 0.103 UG/KG/MIN, CONTINUING, IV DRIP
     Route: 041
     Dates: start: 20090811
  2. TRACLEER /01587701/ (BOSENTAN) [Concomitant]

REACTIONS (1)
  - Device leakage [None]
